FAERS Safety Report 14254770 (Version 1)
Quarter: 2017Q4

REPORT INFORMATION
  Report Type: Spontaneous
  Country: US (occurrence: US)
  Receive Date: 20171205
  Receipt Date: 20171205
  Transmission Date: 20180321
  Serious: No
  Sender: FDA-Public Use
  Company Number: None

PATIENT
  Sex: Female
  Weight: 56.25 kg

DRUGS (5)
  1. CITALOPRAM [Concomitant]
     Active Substance: CITALOPRAM HYDROBROMIDE
  2. XANAX [Concomitant]
     Active Substance: ALPRAZOLAM
  3. CYCLOBENZAPRINE. [Concomitant]
     Active Substance: CYCLOBENZAPRINE
  4. CITALOPRAM HYDROBROMIDE 40 MG [Suspect]
     Active Substance: CITALOPRAM HYDROBROMIDE
     Indication: DEPRESSION
     Dosage: ?          QUANTITY:30 TABLET(S);?
     Route: 048
  5. DAILY VITAMIN [Concomitant]
     Active Substance: VITAMINS

REACTIONS (5)
  - Stress [None]
  - Product substitution issue [None]
  - Drug ineffective [None]
  - Product colour issue [None]
  - Product shape issue [None]

NARRATIVE: CASE EVENT DATE: 20171015
